FAERS Safety Report 9570998 (Version 1)
Quarter: 2013Q4

REPORT INFORMATION
  Report Type: Spontaneous
  Country: IT (occurrence: IT)
  Receive Date: 20131001
  Receipt Date: 20131001
  Transmission Date: 20140711
  Serious: Yes (Hospitalization, Other)
  Sender: FDA-Public Use
  Company Number: IT-JNJFOC-20130913889

PATIENT
  Age: 50 Year
  Sex: Female

DRUGS (5)
  1. TOPIRAMATE [Suspect]
     Indication: EPILEPSY
     Route: 048
  2. TOPIRAMATE [Suspect]
     Indication: EPILEPSY
     Route: 048
  3. PHENOBARBITAL [Concomitant]
     Indication: EPILEPSY
     Route: 065
  4. CLONAZEPAM [Concomitant]
     Indication: EPILEPSY
     Route: 065
  5. LEVETIRACETAM [Concomitant]
     Indication: FACIAL PAIN
     Route: 065

REACTIONS (3)
  - Disorientation [Unknown]
  - Vision blurred [Unknown]
  - Drug ineffective [Unknown]
